FAERS Safety Report 6195731-X (Version None)
Quarter: 2009Q2

REPORT INFORMATION
  Report Type: 
  Country: None (occurrence: None)
  Receive Date: 20090520
  Receipt Date: 20070605
  Transmission Date: 20091009
  Serious: Yes (Hospitalization)
  Sender: FDA-Public Use
  Company Number: US-ASTRAZENECA-2006UW03657

PATIENT
  Age: 17879 Day
  Sex: Female
  Weight: 64.9 kg

DRUGS (24)
  1. SEROQUEL [Suspect]
     Indication: MAJOR DEPRESSION
     Dosage: 25-300 MG
     Route: 048
     Dates: start: 20020501, end: 20040203
  2. SEROQUEL [Suspect]
     Dosage: 25-300 MG
     Route: 048
     Dates: start: 20021001, end: 20030101
  3. RISPERDAL [Suspect]
     Indication: SLEEP DISORDER
     Route: 065
     Dates: start: 20021201, end: 20051001
  4. NEXIUM [Concomitant]
     Dosage: 20-40 MG
     Route: 048
  5. DESYREL [Concomitant]
     Dosage: 100-150 MG
     Route: 048
  6. APRESOLINE [Concomitant]
     Route: 048
  7. NYSTATIN [Concomitant]
     Route: 048
  8. ZOLOFT [Concomitant]
     Dosage: 50-150 MG
     Route: 048
  9. HYDROCHLOROTHIAZIDE [Concomitant]
     Dosage: 12.5-25 MG
     Route: 048
  10. PREVACID [Concomitant]
     Dosage: 30-50 MG
     Route: 048
  11. XANAX [Concomitant]
     Dosage: 0.5-0.25 MG
     Route: 048
  12. GLUCOPHAGE [Concomitant]
     Route: 065
  13. DIABETA [Concomitant]
     Route: 065
  14. TYLENOL [Concomitant]
     Dosage: 325-650 MG
     Route: 048
  15. ADVIL [Concomitant]
     Dosage: 200-400 MG
     Route: 048
  16. ATARAX [Concomitant]
     Route: 048
  17. ZECOR [Concomitant]
     Route: 065
  18. NEURONTIN [Concomitant]
     Indication: ANXIETY
     Route: 065
     Dates: start: 20021031
  19. EFFEXOR XR [Concomitant]
     Dosage: 75-150 MG
     Route: 065
  20. BEXTRA [Concomitant]
     Route: 065
  21. TENORMIN [Concomitant]
     Route: 048
  22. CELEXA [Concomitant]
     Dosage: 20-40 MG
     Route: 065
  23. ZANTAC [Concomitant]
     Route: 065
  24. AMBIEN [Concomitant]
     Route: 065

REACTIONS (21)
  - ABDOMINAL PAIN LOWER [None]
  - ANXIETY DISORDER [None]
  - BLOOD CHOLESTEROL INCREASED [None]
  - BLOOD TRIGLYCERIDES INCREASED [None]
  - DIABETES MELLITUS [None]
  - DIARRHOEA [None]
  - DIVERTICULUM INTESTINAL [None]
  - DRUG DEPENDENCE [None]
  - DYSPHAGIA [None]
  - ESSENTIAL HYPERTENSION [None]
  - FATIGUE [None]
  - GASTROOESOPHAGEAL REFLUX DISEASE [None]
  - HALLUCINATION, VISUAL [None]
  - MAJOR DEPRESSION [None]
  - MUSCULOSKELETAL PAIN [None]
  - NAUSEA [None]
  - PAIN [None]
  - PARANOIA [None]
  - PSYCHOTIC DISORDER [None]
  - SOMNOLENCE [None]
  - VOMITING [None]
